FAERS Safety Report 8844864 (Version 2)
Quarter: 2014Q3

REPORT INFORMATION
  Report Type: Spontaneous
  Country: CA (occurrence: CA)
  Receive Date: 20121017
  Receipt Date: 20140923
  Transmission Date: 20150326
  Serious: Yes (Other)
  Sender: FDA-Public Use
  Company Number: CA-ELI_LILLY_AND_COMPANY-CA201210001843

PATIENT
  Age: 60 Year
  Sex: Male
  Weight: 115.19 kg

DRUGS (6)
  1. CYMBALTA [Suspect]
     Active Substance: DULOXETINE HYDROCHLORIDE
     Indication: PAIN
     Dosage: 30 MG, QD
     Route: 048
     Dates: start: 20120101, end: 20120201
  2. CYMBALTA [Suspect]
     Active Substance: DULOXETINE HYDROCHLORIDE
     Dosage: 60 MG, QD
     Route: 048
     Dates: start: 20120201, end: 20120215
  3. MORPHINE [Concomitant]
     Active Substance: MORPHINE
     Dosage: 20 MG, EVERY 4 HRS
     Route: 048
  4. SALOFALK [Concomitant]
     Active Substance: MESALAMINE
     Dosage: 600 MG, TID
     Route: 048
  5. TYLENOL [Concomitant]
     Active Substance: ACETAMINOPHEN
     Dosage: 325 MG, PRN
     Route: 048
  6. METOCLOPRAMIDE. [Concomitant]
     Active Substance: METOCLOPRAMIDE
     Dosage: 10 MG, TID
     Route: 048

REACTIONS (5)
  - Depression [Unknown]
  - Nightmare [Unknown]
  - Screaming [Unknown]
  - Urticaria [Unknown]
  - Hostility [Unknown]
